FAERS Safety Report 9563290 (Version 2)
Quarter: 2013Q3

REPORT INFORMATION
  Report Type: Spontaneous
  Country: GB (occurrence: GB)
  Receive Date: 20130927
  Receipt Date: 20130927
  Transmission Date: 20140515
  Serious: Yes (Death, Hospitalization, Other)
  Sender: FDA-Public Use
  Company Number: GB-BAXTER-2013BAX033152

PATIENT
  Age: 86 Year
  Sex: Male

DRUGS (1)
  1. DIANEAL PD4 GLUCOSE 1.36% W/V / 13.6 MG/ML [Suspect]
     Indication: PERITONEAL DIALYSIS
     Route: 033
     Dates: start: 20090317, end: 20130722

REACTIONS (3)
  - Death [Fatal]
  - Gangrene [Unknown]
  - Infection [Unknown]
